FAERS Safety Report 4665502-1 (Version None)
Quarter: 2005Q2

REPORT INFORMATION
  Report Type: 
  Country: None (occurrence: None)
  Receive Date: 20050519
  Receipt Date: 20050304
  Transmission Date: 20051028
  Serious: Yes (Other)
  Sender: FDA-Public Use
  Company Number: US-BRISTOL-MYERS SQUIBB COMPANY-12886412

PATIENT
  Age: 28 Year
  Sex: Male

DRUGS (2)
  1. CYTOXAN [Suspect]
     Indication: BRAIN NEOPLASM
     Dates: start: 20030725, end: 20040908
  2. THALOMID [Suspect]
     Indication: BRAIN NEOPLASM
     Dosage: 50 MG CAPSULES
     Route: 048
     Dates: start: 20030725, end: 20040908

REACTIONS (1)
  - PNEUMONITIS [None]
